FAERS Safety Report 7588759-6 (Version None)
Quarter: 2011Q3

REPORT INFORMATION
  Report Type: 
  Country: None (occurrence: None)
  Receive Date: 20110705
  Receipt Date: 20110622
  Transmission Date: 20111222
  Serious: Yes (Life-Threatening, Hospitalization)
  Sender: FDA-Public Use
  Company Number: ES-MPIJNJ-2011-00943

PATIENT

DRUGS (6)
  1. DEXAMETHASONE [Suspect]
     Indication: MULTIPLE MYELOMA
     Dosage: 16 MG, CYCLIC
     Route: 048
     Dates: start: 20110128, end: 20110218
  2. ASPIRIN [Concomitant]
     Indication: THROMBOSIS PROPHYLAXIS
     Dosage: UNK
     Dates: start: 20110217
  3. ASPIRIN [Concomitant]
     Indication: THROMBOSIS PROPHYLAXIS
     Dosage: 100 MG, UNK
     Route: 048
     Dates: start: 20030301
  4. VELCADE [Suspect]
     Indication: MULTIPLE MYELOMA
     Dosage: 2.2 MG/M2, CYCLIC
     Route: 042
     Dates: start: 20110128, end: 20110218
  5. DEPAKENE [Concomitant]
     Indication: CONVULSION
     Dosage: 10 MG, UNK
     Route: 048
     Dates: start: 20050101
  6. CYCLOPHOSPHAMIDE [Suspect]
     Indication: MULTIPLE MYELOMA
     Dosage: UNK
     Route: 048
     Dates: start: 20110128, end: 20110218

REACTIONS (2)
  - ANAEMIA [None]
  - CARDIAC FAILURE [None]
